FAERS Safety Report 5829055-4 (Version None)
Quarter: 2008Q3

REPORT INFORMATION
  Report Type: 
  Country: None (occurrence: None)
  Receive Date: 20080731
  Receipt Date: 20080722
  Transmission Date: 20090109
  Serious: Yes (Hospitalization)
  Sender: FDA-Public Use
  Company Number: FR-SANOFI-SYNTHELABO-A02200802238

PATIENT
  Sex: Male

DRUGS (12)
  1. DOLIPRANE [Concomitant]
     Indication: PAIN
     Dosage: 4 G
     Route: 048
     Dates: end: 20080329
  2. DOLIPRANE [Concomitant]
     Dosage: 1 G
     Route: 048
     Dates: start: 20080330, end: 20080404
  3. DOLIPRANE [Concomitant]
     Dosage: 3 G
     Route: 048
     Dates: start: 20080405
  4. TOPALGIC [Concomitant]
     Indication: PAIN
     Route: 048
     Dates: start: 20080321
  5. PANTOPRAZOLE SODIUM [Concomitant]
     Indication: PROPHYLAXIS
     Route: 048
  6. AMOXICILLIN [Suspect]
     Indication: URINARY TRACT INFECTION
     Route: 048
     Dates: start: 20080404, end: 20080410
  7. TAVANIC [Suspect]
     Indication: URINARY TRACT INFECTION
     Route: 048
     Dates: start: 20080401, end: 20080404
  8. XATRAL [Suspect]
     Indication: PROSTATIC ADENOMA
     Route: 048
     Dates: start: 20080325, end: 20080410
  9. CALCIPARINE [Suspect]
     Indication: PULMONARY EMBOLISM
     Route: 058
     Dates: start: 20080321
  10. ATHYMIL [Concomitant]
     Indication: DRUG USE FOR UNKNOWN INDICATION
     Route: 048
  11. CORTANCYL [Concomitant]
     Indication: DRUG USE FOR UNKNOWN INDICATION
     Route: 048
  12. MOVICOL [Concomitant]
     Indication: DRUG USE FOR UNKNOWN INDICATION
     Dosage: 2 DF
     Route: 048

REACTIONS (2)
  - INJECTION SITE RASH [None]
  - TOXIC SKIN ERUPTION [None]
